FAERS Safety Report 21004176 (Version 1)
Quarter: 2022Q2

REPORT INFORMATION
  Report Type: Spontaneous
  Country: US (occurrence: US)
  Receive Date: 20220624
  Receipt Date: 20220624
  Transmission Date: 20220720
  Serious: No
  Sender: FDA-Public Use
  Company Number: US-AVEO ONCOLOGY-2022-AVEO-US000140

PATIENT

DRUGS (7)
  1. FOTIVDA [Suspect]
     Active Substance: TIVOZANIB HYDROCHLORIDE
     Indication: Renal cell carcinoma
     Dosage: 1.34 MG, DAILY FOR 21 DAYS, THEN 7 DAYS OFF
     Route: 048
     Dates: start: 20220411
  2. AMLODIPINE BESYLATE [Concomitant]
     Active Substance: AMLODIPINE BESYLATE
  3. CARVEDILOL [Concomitant]
     Active Substance: CARVEDILOL
  4. ELIQUIS [Concomitant]
     Active Substance: APIXABAN
  5. HUMALOG [Concomitant]
     Active Substance: INSULIN LISPRO
  6. HYDROCORTISONE [Concomitant]
     Active Substance: HYDROCORTISONE
  7. LANTUS [Concomitant]
     Active Substance: INSULIN GLARGINE

REACTIONS (1)
  - Diarrhoea [Recovered/Resolved]
